FAERS Safety Report 5574258-X (Version None)
Quarter: 2007Q4

REPORT INFORMATION
  Report Type: 
  Country: None (occurrence: None)
  Receive Date: 20071221
  Receipt Date: 20071221
  Transmission Date: 20080405
  Serious: Yes (Other)
  Sender: FDA-Public Use
  Company Number: None

PATIENT
  Age: 48 Year
  Sex: Male
  Weight: 92.9874 kg

DRUGS (1)
  1. REMICADE [Suspect]
     Indication: PSORIATIC ARTHROPATHY
     Dosage: 300MG Q2MONTHS IV
     Route: 042
     Dates: start: 20040101

REACTIONS (2)
  - IMMUNE SYSTEM DISORDER [None]
  - MYRINGITIS [None]
